FAERS Safety Report 18569044 (Version 1)
Quarter: 2020Q4

REPORT INFORMATION
  Report Type: Spontaneous
  Country: US (occurrence: US)
  Receive Date: 20201201
  Receipt Date: 20201201
  Transmission Date: 20210114
  Serious: No
  Sender: FDA-Public Use
  Company Number: None

PATIENT
  Age: 49 Year
  Sex: Female

DRUGS (1)
  1. LOSARTAN 25MG [Suspect]
     Active Substance: LOSARTAN
     Route: 048
     Dates: start: 20201118, end: 20201130

REACTIONS (6)
  - Back pain [None]
  - Nausea [None]
  - Myalgia [None]
  - Dyspepsia [None]
  - Pain [None]
  - Constipation [None]

NARRATIVE: CASE EVENT DATE: 20201118
